FAERS Safety Report 24466006 (Version 1)
Quarter: 2024Q4

REPORT INFORMATION
  Report Type: Report from Study
  Country: US (occurrence: US)
  Receive Date: 20241018
  Receipt Date: 20241018
  Transmission Date: 20250114
  Serious: No
  Sender: ROCHE
  Company Number: US-ROCHE-3540504

PATIENT
  Age: 64 Year
  Sex: Female

DRUGS (4)
  1. XOLAIR [Suspect]
     Active Substance: OMALIZUMAB
     Indication: Asthma
     Route: 058
  2. ALBUTEROL SULFATE [Concomitant]
     Active Substance: ALBUTEROL SULFATE
  3. VENTOLIN HFA [Concomitant]
     Active Substance: ALBUTEROL SULFATE
  4. ARFORMOTEROL [Concomitant]
     Active Substance: ARFORMOTEROL

REACTIONS (4)
  - Diabetes mellitus [Unknown]
  - Hyperglycaemia [Unknown]
  - Metabolic dysfunction-associated steatohepatitis [Unknown]
  - Hypersensitivity pneumonitis [Unknown]
